FAERS Safety Report 4823658-1 (Version None)
Quarter: 2005Q4

REPORT INFORMATION
  Report Type: 
  Country: None (occurrence: None)
  Receive Date: 20051109
  Receipt Date: 20051031
  Transmission Date: 20060501
  Serious: Yes (Other)
  Sender: FDA-Public Use
  Company Number: IT-GLAXOSMITHKLINE-B0399505A

PATIENT
  Sex: Male

DRUGS (3)
  1. ZIDOVUDINE [Suspect]
     Indication: ANTIVIRAL PROPHYLAXIS
     Dosage: 250MG TWICE PER DAY
  2. ZIDOVUDINE [Suspect]
  3. ZIDOVUDINE [Suspect]
     Route: 048

REACTIONS (16)
  - ANAEMIA [None]
  - APNOEA [None]
  - BRAIN DAMAGE [None]
  - DRUG EXPOSURE DURING PREGNANCY [None]
  - DYSPRAXIA [None]
  - ENCEPHALITIS [None]
  - ERYTHROPOIESIS ABNORMAL [None]
  - EYE MOVEMENT DISORDER [None]
  - HYPERLACTACIDAEMIA [None]
  - HYPOTONIA [None]
  - ILL-DEFINED DISORDER [None]
  - MITOCHONDRIAL DNA DEPLETION [None]
  - PALLOR [None]
  - PSYCHOMOTOR SKILLS IMPAIRED [None]
  - STRABISMUS [None]
  - TACHYPNOEA [None]
